FAERS Safety Report 5491482-5 (Version None)
Quarter: 2007Q4

REPORT INFORMATION
  Report Type: 
  Country: None (occurrence: None)
  Receive Date: 20071022
  Receipt Date: 20071011
  Transmission Date: 20080405
  Serious: Yes (Other)
  Sender: FDA-Public Use
  Company Number: PHBS2007IN16984

PATIENT
  Age: 37 Year
  Sex: Male

DRUGS (4)
  1. CLOZAPINE [Suspect]
     Indication: SCHIZOPHRENIA, PARANOID TYPE
     Dosage: 25 MG/DAY
  2. CLOZAPINE [Suspect]
     Dosage: UP TO 150 MG/DAY
  3. TRIHEXYPHENIDYL HCL [Suspect]
     Dosage: 6 MG/DAY
     Route: 048
  4. TRIHEXYPHENIDYL HCL [Suspect]
     Dosage: 4 MG/DAY
     Route: 048

REACTIONS (2)
  - CONSTIPATION [None]
  - OCULOGYRIC CRISIS [None]
